FAERS Safety Report 16776749 (Version 1)
Quarter: 2019Q3

REPORT INFORMATION
  Report Type: Spontaneous
  Country: US (occurrence: US)
  Receive Date: 20190905
  Receipt Date: 20190905
  Transmission Date: 20191005
  Serious: No
  Sender: FDA-Public Use
  Company Number: US-SA-2019SA246384

PATIENT
  Sex: Female

DRUGS (2)
  1. FLURAZEPAM [Concomitant]
     Active Substance: FLURAZEPAM HYDROCHLORIDE
     Dosage: UNK UNK, UNK
  2. AMBIEN [Suspect]
     Active Substance: ZOLPIDEM TARTRATE
     Indication: PRODUCT USED FOR UNKNOWN INDICATION

REACTIONS (2)
  - Dizziness [Unknown]
  - Insomnia [Unknown]
